FAERS Safety Report 9807759 (Version 2)
Quarter: 2014Q1

REPORT INFORMATION
  Report Type: Spontaneous
  Country: US (occurrence: US)
  Receive Date: 20140110
  Receipt Date: 20140204
  Transmission Date: 20141002
  Serious: Yes (Other)
  Sender: FDA-Public Use
  Company Number: US-ASTRAZENECA-2014SE00685

PATIENT
  Age: 73 Year
  Sex: Female
  Weight: 63.5 kg

DRUGS (3)
  1. PULMICORT FLEXHALER [Suspect]
     Indication: ASTHMA
     Route: 055
     Dates: start: 2007
  2. PULMICORT FLEXHALER [Suspect]
     Indication: ASTHMA
     Route: 055
     Dates: start: 20140103
  3. ACIPHEX [Concomitant]
     Indication: GASTRIC DISORDER
     Route: 048

REACTIONS (5)
  - Wrist fracture [Recovering/Resolving]
  - Visual acuity reduced [Unknown]
  - Fall [Unknown]
  - Cataract [Unknown]
  - Hypermetropia [Unknown]
